FAERS Safety Report 6336237-4 (Version None)
Quarter: 2009Q3

REPORT INFORMATION
  Report Type: 
  Country: None (occurrence: None)
  Receive Date: 20090901
  Receipt Date: 20090824
  Transmission Date: 20100115
  Serious: Yes (Other)
  Sender: FDA-Public Use
  Company Number: PHHY2009BR35970

PATIENT
  Age: 74 Year
  Sex: Female

DRUGS (1)
  1. SLOW-K [Suspect]
     Dosage: 600 MG, UNK

REACTIONS (1)
  - CEREBROVASCULAR ACCIDENT [None]
